FAERS Safety Report 15459236 (Version 1)
Quarter: 2018Q3

REPORT INFORMATION
  Report Type: Spontaneous
  Country: US (occurrence: US)
  Receive Date: 20180928
  Receipt Date: 20180928
  Transmission Date: 20181010
  Serious: No
  Sender: FDA-Public Use
  Company Number: None

PATIENT
  Age: 56 Year
  Sex: Female
  Weight: 83.01 kg

DRUGS (1)
  1. ENBREL [Suspect]
     Active Substance: ETANERCEPT
     Indication: RHEUMATOID ARTHRITIS
     Dosage: INJECT 50MG SUBCUTANEOUSLY TWO TIMES A  WEEK  72?96 HOURS APART   AS DIRECTED FOR 3 MONTHS
     Route: 058
     Dates: start: 201703

REACTIONS (2)
  - Nerve compression [None]
  - Nerve block [None]
